FAERS Safety Report 6173392-3 (Version None)
Quarter: 2009Q2

REPORT INFORMATION
  Report Type: 
  Country: None (occurrence: None)
  Receive Date: 20090430
  Receipt Date: 20090421
  Transmission Date: 20091009
  Serious: Yes (Hospitalization)
  Sender: FDA-Public Use
  Company Number: GB-NOVOPROD-286423

PATIENT
  Age: 69 Year
  Sex: Female

DRUGS (1)
  1. KLIOVANCE [Suspect]
     Indication: BONE DENSITY DECREASED
     Dates: end: 20090324

REACTIONS (2)
  - BREAST CYST [None]
  - VAGINAL HAEMORRHAGE [None]
